FAERS Safety Report 6097201-6 (Version None)
Quarter: 2009Q1

REPORT INFORMATION
  Report Type: 
  Country: None (occurrence: None)
  Receive Date: 20090227
  Receipt Date: 20090218
  Transmission Date: 20090719
  Serious: Yes (Disabling, Congenital Anomaly, Other)
  Sender: FDA-Public Use
  Company Number: B0550726A

PATIENT

DRUGS (3)
  1. LAMOTRIGINE [Suspect]
     Indication: EPILEPSY
     Dosage: 100MG PER DAY
  2. VALPROIC ACID [Suspect]
     Indication: EPILEPSY
     Dosage: 2000MG PER DAY
  3. FOLIC ACID [Suspect]

REACTIONS (2)
  - AUTISM SPECTRUM DISORDER [None]
  - DRUG EXPOSURE DURING PREGNANCY [None]
